FAERS Safety Report 9913170 (Version 2)
Quarter: 2014Q1

REPORT INFORMATION
  Report Type: Spontaneous
  Country: IT (occurrence: None)
  Receive Date: 20140212
  Receipt Date: 20140310
  Transmission Date: 20141002
  Serious: Yes (Hospitalization)
  Sender: FDA-Public Use
  Company Number: FK201400411

PATIENT
  Age: 70 Year
  Sex: Female
  Weight: 73 kg

DRUGS (3)
  1. IRINOTECAN [Suspect]
     Indication: PANCREATIC CARCINOMA
     Dosage: 240, MG/MQ BODY SURFACE
     Route: 042
     Dates: start: 20140121, end: 20140121
  2. OXALIPLATIN ACCORD [Suspect]
     Indication: PANCREATIC CARCINOMA
     Dosage: CYCLICAL
     Route: 042
     Dates: start: 20140121, end: 20140121
  3. FLUOROURACIL [Suspect]
     Indication: PANCREATIC CARCINOMA
     Dosage: 3200, MG/MQ BODY SURFACE
     Route: 042
     Dates: start: 20130121, end: 20130121

REACTIONS (3)
  - Tremor [None]
  - Asthenia [None]
  - Diarrhoea [None]
